FAERS Safety Report 9318555 (Version 1)
Quarter: 2013Q2

REPORT INFORMATION
  Report Type: Spontaneous
  Country: US (occurrence: US)
  Receive Date: 20130530
  Receipt Date: 20130530
  Transmission Date: 20140414
  Serious: No
  Sender: FDA-Public Use
  Company Number: US-NOVEN-12US005708

PATIENT
  Age: 8 Year
  Sex: Male
  Weight: 32.65 kg

DRUGS (2)
  1. DAYTRANA [Suspect]
     Indication: ATTENTION DEFICIT/HYPERACTIVITY DISORDER
     Dosage: 10 MG, UNK
     Route: 062
     Dates: end: 20121116
  2. MULTIVITAMINS WITH IRON            /02277801/ [Concomitant]
     Indication: ANAEMIA
     Route: 048

REACTIONS (1)
  - Dysphemia [Not Recovered/Not Resolved]
